FAERS Safety Report 13425434 (Version 4)
Quarter: 2018Q2

REPORT INFORMATION
  Report Type: Spontaneous
  Country: US (occurrence: US)
  Receive Date: 20170411
  Receipt Date: 20180410
  Transmission Date: 20180711
  Serious: No
  Sender: FDA-Public Use
  Company Number: US-TEVA-757555ACC

PATIENT
  Sex: Female

DRUGS (12)
  1. COPAXONE [Suspect]
     Active Substance: GLATIRAMER ACETATE
     Indication: MULTIPLE SCLEROSIS
     Route: 058
     Dates: start: 20110923
  2. CALCIUM [Concomitant]
     Active Substance: CALCIUM
  3. LUTEIN [Concomitant]
     Active Substance: LUTEIN
  4. TURMERIC [Concomitant]
     Active Substance: HERBALS\TURMERIC
  5. IRON [Concomitant]
     Active Substance: IRON
  6. OXYBUTYNIN. [Concomitant]
     Active Substance: OXYBUTYNIN CHLORIDE
  7. VITAMIN C [Concomitant]
     Active Substance: ASCORBIC ACID
  8. AMPYRA [Suspect]
     Active Substance: DALFAMPRIDINE
     Route: 065
  9. LEVOTHYROXINE. [Concomitant]
     Active Substance: LEVOTHYROXINE
  10. MULTIVITAMIN [Concomitant]
     Active Substance: VITAMINS
  11. BACLOFEN. [Concomitant]
     Active Substance: BACLOFEN
  12. LEXAPRO [Concomitant]
     Active Substance: ESCITALOPRAM OXALATE

REACTIONS (4)
  - Fall [Unknown]
  - Motor dysfunction [Unknown]
  - Gait disturbance [Not Recovered/Not Resolved]
  - Throat irritation [Not Recovered/Not Resolved]
